FAERS Safety Report 8978476 (Version 1)
Quarter: 2012Q4

REPORT INFORMATION
  Report Type: 
  Country: US (occurrence: US)
  Receive Date: 20121221
  Receipt Date: 20121221
  Transmission Date: 20130627
  Serious: Yes (Hospitalization)
  Sender: FDA-Public Use
  Company Number: US-BRISTOL-MYERS SQUIBB COMPANY-17205873

PATIENT
  Age: 81 Year
  Sex: Female

DRUGS (1)
  1. ORENCIA [Suspect]
     Dosage: Last inf:06DEC2012
     Route: 042

REACTIONS (4)
  - Device leakage [Unknown]
  - Headache [Unknown]
  - Viral infection [Unknown]
  - Nausea [Unknown]
